FAERS Safety Report 4747992-9 (Version None)
Quarter: 2005Q3

REPORT INFORMATION
  Report Type: 
  Country: None (occurrence: None)
  Receive Date: 20050818
  Receipt Date: 20050808
  Transmission Date: 20060218
  Serious: Yes (Life-Threatening, Hospitalization, Disabling)
  Sender: FDA-Public Use
  Company Number: US-SANOFI-SYNTHELABO-A03200502484

PATIENT
  Sex: Female
  Weight: 129.3 kg

DRUGS (11)
  1. PLAVIX [Suspect]
     Indication: PULMONARY EMBOLISM
     Route: 048
     Dates: start: 20020720, end: 20040218
  2. PLAVIX [Suspect]
     Route: 048
     Dates: start: 20020720, end: 20040218
  3. LOVENOX [Suspect]
     Indication: PULMONARY EMBOLISM
     Route: 058
     Dates: start: 20030101, end: 20040530
  4. LOVENOX [Suspect]
     Indication: DEEP VEIN THROMBOSIS
     Route: 058
     Dates: start: 20030101, end: 20040530
  5. LOVENOX [Suspect]
     Route: 058
     Dates: start: 20040531
  6. LOVENOX [Suspect]
     Route: 058
     Dates: start: 20040531
  7. ASPIRIN [Concomitant]
     Dosage: UNK
     Route: 048
     Dates: start: 20020101, end: 20040210
  8. NEXIUM [Concomitant]
     Dosage: UNK
     Route: 048
  9. VERAPAMIL [Concomitant]
     Dosage: UNK
     Route: 048
  10. TOPAMAX [Concomitant]
     Dosage: UNK
     Route: 048
  11. PROZAC [Concomitant]
     Dosage: UNK
     Route: 048

REACTIONS (11)
  - CARDIO-RESPIRATORY ARREST [None]
  - COMA [None]
  - DIALYSIS [None]
  - HAEMORRHAGE [None]
  - HYPOVOLAEMIC SHOCK [None]
  - MUSCLE HAEMORRHAGE [None]
  - NERVE INJURY [None]
  - OEDEMA PERIPHERAL [None]
  - RENAL FAILURE [None]
  - RETROPERITONEAL HAEMATOMA [None]
  - URINARY BLADDER RUPTURE [None]
